FAERS Safety Report 7995455-X (Version None)
Quarter: 2011Q4

REPORT INFORMATION
  Report Type: 
  Country: None (occurrence: None)
  Receive Date: 20111220
  Receipt Date: 20111214
  Transmission Date: 20120403
  Serious: No
  Sender: FDA-Public Use
  Company Number: US-BAYER-2011-121691

PATIENT

DRUGS (1)
  1. ASPIRIN [Suspect]
     Dosage: 1 DF, QD
     Route: 048

REACTIONS (1)
  - ABDOMINAL DISCOMFORT [None]
